FAERS Safety Report 24875075 (Version 2)
Quarter: 2025Q1

REPORT INFORMATION
  Report Type: Other
  Country: MX (occurrence: MX)
  Receive Date: 20250122
  Receipt Date: 20250122
  Transmission Date: 20250409
  Serious: Yes (Hospitalization)
  Sender: B BRAUN
  Company Number: MX-B.Braun Medical Inc.-2169568

PATIENT
  Age: 58 Year
  Sex: Female

DRUGS (10)
  1. ACETAMINOPHEN [Suspect]
     Active Substance: ACETAMINOPHEN
     Indication: Pyrexia
  2. ACETAMINOPHEN [Suspect]
     Active Substance: ACETAMINOPHEN
     Indication: Headache
  3. ACETAMINOPHEN [Suspect]
     Active Substance: ACETAMINOPHEN
     Indication: Arthralgia
  4. CHLOROQUINE [Concomitant]
     Active Substance: CHLOROQUINE
  5. Hartmann solution [Concomitant]
  6. HYDROCHLOROTHIAZIDE [Concomitant]
     Active Substance: HYDROCHLOROTHIAZIDE
  7. AMLODIPINE [Concomitant]
     Active Substance: AMLODIPINE BESYLATE
  8. VALSARTAN [Concomitant]
     Active Substance: VALSARTAN
  9. PREDNISONE [Concomitant]
     Active Substance: PREDNISONE
  10. AZATHIOPRINE [Concomitant]
     Active Substance: AZATHIOPRINE

REACTIONS (1)
  - Drug ineffective [Unknown]
